FAERS Safety Report 23717171 (Version 1)
Quarter: 2024Q2

REPORT INFORMATION
  Report Type: Spontaneous
  Country: US (occurrence: US)
  Receive Date: 20240408
  Receipt Date: 20240408
  Transmission Date: 20240716
  Serious: Yes (Hospitalization)
  Sender: FDA-Public Use
  Company Number: US-MYLANLABS-2024M1029464

PATIENT
  Age: 75 Year
  Sex: Female
  Weight: 52 kg

DRUGS (8)
  1. TACROLIMUS [Interacting]
     Active Substance: TACROLIMUS
     Indication: Immunosuppressant drug therapy
     Dosage: UNK, THERAPY WAS DISCONTINUED BEFORE ADR OR SYMPTOMS ONSET
     Route: 065
  2. TACROLIMUS [Interacting]
     Active Substance: TACROLIMUS
     Dosage: UNK, INITIATED AGAIN
     Route: 065
  3. NIRMATRELVIR\RITONAVIR [Interacting]
     Active Substance: NIRMATRELVIR\RITONAVIR
     Indication: COVID-19
     Dosage: UNK
     Route: 065
  4. LOSARTAN [Suspect]
     Active Substance: LOSARTAN
     Indication: Hypertension
     Dosage: UNK
     Route: 065
  5. DAPAGLIFLOZIN [Suspect]
     Active Substance: DAPAGLIFLOZIN
     Indication: Diabetes mellitus
     Dosage: UNK
     Route: 065
  6. MYCOPHENOLATE MOFETIL [Concomitant]
     Active Substance: MYCOPHENOLATE MOFETIL
     Indication: Immunosuppressant drug therapy
     Dosage: UNK
     Route: 065
  7. VALSARTAN [Concomitant]
     Active Substance: VALSARTAN
     Indication: Hypertension
     Dosage: UNK
     Route: 065
  8. ATORVASTATIN [Concomitant]
     Active Substance: ATORVASTATIN
     Indication: Product used for unknown indication
     Dosage: UNK
     Route: 065

REACTIONS (5)
  - Toxicity to various agents [Recovering/Resolving]
  - Headache [Unknown]
  - Malaise [Unknown]
  - Drug interaction [Unknown]
  - Acute kidney injury [Recovering/Resolving]
